FAERS Safety Report 7671778-9 (Version None)
Quarter: 2011Q3

REPORT INFORMATION
  Report Type: 
  Country: None (occurrence: None)
  Receive Date: 20110809
  Receipt Date: 20110803
  Transmission Date: 20111222
  Serious: Yes (Death, Other)
  Sender: FDA-Public Use
  Company Number: JP-ROCHE-761091

PATIENT
  Age: 106 Day
  Sex: Male
  Weight: 6.7 kg

DRUGS (16)
  1. MEROPENEM [Concomitant]
     Route: 042
     Dates: start: 20081226, end: 20090109
  2. MANNITOL [Concomitant]
     Route: 042
     Dates: start: 20081226, end: 20090409
  3. ASPIRIN [Concomitant]
     Route: 042
     Dates: start: 20090103, end: 20090107
  4. NAFAMOSTAT MESILATE [Concomitant]
     Route: 042
     Dates: start: 20090111, end: 20090113
  5. AMINO ACID INJ [Concomitant]
     Route: 042
     Dates: start: 20090103, end: 20090113
  6. WAKOBITAL [Concomitant]
     Route: 054
     Dates: start: 20081226, end: 20090110
  7. NOVOLIN R [Concomitant]
     Route: 042
     Dates: start: 20081230, end: 20081231
  8. MINERALIN [Concomitant]
     Route: 042
     Dates: start: 20090101, end: 20090119
  9. NAFAMOSTAT MESILATE [Concomitant]
     Route: 042
     Dates: start: 20081226, end: 20090109
  10. VENOGLOBULIN [Concomitant]
     Route: 042
     Dates: start: 20081226, end: 20081228
  11. DECADRON [Concomitant]
     Route: 042
     Dates: start: 20081226, end: 20081228
  12. FULCALIQ 2 [Concomitant]
     Route: 042
     Dates: start: 20090101, end: 20090119
  13. MIDAZOLAM HCL [Concomitant]
     Route: 042
     Dates: start: 20081230, end: 20090109
  14. ROCEPHIN [Suspect]
     Indication: MENINGITIS BACTERIAL
     Route: 042
     Dates: start: 20081226, end: 20090110
  15. SODIUM BICARBONATE [Concomitant]
     Route: 042
     Dates: start: 20081230, end: 20081230
  16. FAMOTIDINE [Concomitant]
     Route: 042
     Dates: start: 20081226, end: 20090113

REACTIONS (9)
  - DISSEMINATED INTRAVASCULAR COAGULATION [None]
  - CONVULSION [None]
  - DURAL ABSCESS [None]
  - RESPIRATORY FAILURE [None]
  - CYTOMEGALOVIRUS INFECTION [None]
  - PLATELET COUNT INCREASED [None]
  - TOXIC EPIDERMAL NECROLYSIS [None]
  - HEPATIC FUNCTION ABNORMAL [None]
  - METABOLIC ACIDOSIS [None]
